FAERS Safety Report 15736221 (Version 1)
Quarter: 2018Q4

REPORT INFORMATION
  Report Type: Report from Study
  Country: None (occurrence: AU)
  Receive Date: 20181218
  Receipt Date: 20181218
  Transmission Date: 20190205
  Serious: Yes (Hospitalization)
  Sender: FDA-Public Use
  Company Number: AU-ABBVIE-18K-008-2592174-00

PATIENT
  Sex: Female

DRUGS (1)
  1. HUMIRA [Suspect]
     Active Substance: ADALIMUMAB
     Indication: PSORIATIC ARTHROPATHY
     Route: 058
     Dates: start: 2015

REACTIONS (6)
  - Haemorrhage [Unknown]
  - Anaemia [Unknown]
  - Polyp [Unknown]
  - Splenomegaly [Unknown]
  - Hypoacusis [Unknown]
  - Lower respiratory tract infection [Unknown]
